FAERS Safety Report 10223013 (Version 1)
Quarter: 2014Q2

REPORT INFORMATION
  Report Type: Spontaneous
  Country: FR (occurrence: FR)
  Receive Date: 20140607
  Receipt Date: 20140607
  Transmission Date: 20141212
  Serious: Yes (Death, Other)
  Sender: FDA-Public Use
  Company Number: PHHY2014FR067531

PATIENT
  Age: 59 Year
  Sex: Female

DRUGS (5)
  1. 5-FLUOROURACIL [Suspect]
     Indication: INVASIVE DUCTAL BREAST CARCINOMA
  2. EPIRUBICIN [Suspect]
     Indication: INVASIVE DUCTAL BREAST CARCINOMA
  3. CYCLOPHOSPHAMIDE [Suspect]
     Indication: INVASIVE DUCTAL BREAST CARCINOMA
  4. RADIOTHERAPY [Suspect]
     Indication: INVASIVE DUCTAL BREAST CARCINOMA
  5. TRASTUZUMAB [Suspect]
     Indication: INVASIVE DUCTAL BREAST CARCINOMA

REACTIONS (4)
  - Death [Fatal]
  - Lymphadenopathy mediastinal [Unknown]
  - Metastases to pleura [Unknown]
  - Metastases to bone [Unknown]
